FAERS Safety Report 7553047-0 (Version None)
Quarter: 2011Q2

REPORT INFORMATION
  Report Type: 
  Country: None (occurrence: None)
  Receive Date: 20110616
  Receipt Date: 20110526
  Transmission Date: 20111010
  Serious: Yes (Death, Hospitalization)
  Sender: FDA-Public Use
  Company Number: BE-AMGEN-BELSP2011022057

PATIENT
  Age: 63 Year
  Sex: Male

DRUGS (3)
  1. FOLFIRI [Concomitant]
     Dosage: UNK
     Dates: start: 20100201, end: 20100701
  2. AVASTIN [Concomitant]
     Dosage: UNK
     Dates: start: 20100201, end: 20100801
  3. VECTIBIX [Suspect]
     Indication: COLORECTAL CANCER METASTATIC
     Dosage: 534 MG, ONE TIME DOSE
     Route: 042
     Dates: start: 20110121, end: 20110121

REACTIONS (4)
  - JAUNDICE [None]
  - RASH [None]
  - DEATH [None]
  - FATIGUE [None]
